FAERS Safety Report 5372603-1 (Version None)
Quarter: 2007Q2

REPORT INFORMATION
  Report Type: 
  Country: None (occurrence: None)
  Receive Date: 20070627
  Receipt Date: 20070625
  Transmission Date: 20071010
  Serious: Yes (Other)
  Sender: FDA-Public Use
  Company Number: US-SHR-US-2007-023542

PATIENT
  Age: 23 Year
  Sex: Female
  Weight: 91 kg

DRUGS (3)
  1. MIRENA [Suspect]
     Indication: CONTRACEPTION
     Dosage: 20 A?G/DAY, CONT
     Route: 015
     Dates: start: 20070201
  2. GLIPIZIDE [Concomitant]
     Dosage: 10 MG, 1X/DAY
     Route: 048
  3. ASPIRIN [Concomitant]
     Dosage: 81 MG, 3X/WEEK
     Route: 048

REACTIONS (5)
  - ABDOMINAL PAIN [None]
  - BACK PAIN [None]
  - LOSS OF CONSCIOUSNESS [None]
  - MENORRHAGIA [None]
  - METRORRHAGIA [None]
